FAERS Safety Report 4554719-2 (Version None)
Quarter: 2004Q4

REPORT INFORMATION
  Report Type: 
  Country: None (occurrence: None)
  Receive Date: 20041227
  Receipt Date: 20041012
  Transmission Date: 20050328
  Serious: No
  Sender: FDA-Public Use
  Company Number: US095097

PATIENT
  Age: 44 Year
  Sex: Female
  Weight: 47 kg

DRUGS (8)
  1. SENSIPAR [Suspect]
     Indication: HYPERPARATHYROIDISM SECONDARY
     Dosage: 30 MG, 1 IN 1 DAYS, PO
     Route: 048
     Dates: start: 20041004, end: 20041018
  2. EPOGEN [Concomitant]
  3. NIFEDIPINE [Concomitant]
  4. SEVELAMER HCL [Concomitant]
  5. PHOSLO [Concomitant]
  6. CLONIDINE [Concomitant]
  7. ENALAPRIL MALEATE [Concomitant]
  8. PARICALCITOL [Concomitant]

REACTIONS (3)
  - HYPERHIDROSIS [None]
  - NAUSEA [None]
  - VOMITING [None]
